FAERS Safety Report 6384393-4 (Version None)
Quarter: 2009Q4

REPORT INFORMATION
  Report Type: 
  Country: None (occurrence: None)
  Receive Date: 20091001
  Receipt Date: 20090924
  Transmission Date: 20100525
  Serious: Yes (Other)
  Sender: FDA-Public Use
  Company Number: US-JNJFOC-20090907574

PATIENT
  Sex: Female

DRUGS (3)
  1. REMICADE [Suspect]
     Dosage: RECEIVED 2 INDUCTION DOSES
     Route: 042
     Dates: start: 20090101
  2. REMICADE [Suspect]
     Indication: DRUG USE FOR UNKNOWN INDICATION
     Route: 042
     Dates: start: 20090101
  3. AZATHIOPRINE [Concomitant]

REACTIONS (3)
  - CHEST X-RAY ABNORMAL [None]
  - DYSPNOEA [None]
  - NECK MASS [None]
